FAERS Safety Report 16342279 (Version 1)
Quarter: 2019Q2

REPORT INFORMATION
  Report Type: Spontaneous
  Country: US (occurrence: US)
  Receive Date: 20190521
  Receipt Date: 20190521
  Transmission Date: 20190711
  Serious: Yes (Hospitalization)
  Sender: FDA-Public Use
  Company Number: None

PATIENT
  Age: 44 Year
  Sex: Female

DRUGS (6)
  1. OLANZAPINE. [Suspect]
     Active Substance: OLANZAPINE
     Indication: PSYCHOTIC DISORDER
     Route: 048
  2. VITAMIIN C [Concomitant]
     Active Substance: ASCORBIC ACID
  3. OLANZAPINE. [Suspect]
     Active Substance: OLANZAPINE
     Indication: AFFECTIVE DISORDER
     Route: 048
  4. SENNA DOCUSTE [Concomitant]
  5. MULTIVITAMINS [Concomitant]
     Active Substance: VITAMINS
  6. IRON GLUCONATE [Concomitant]

REACTIONS (5)
  - Blood triglycerides increased [None]
  - Blood cholesterol increased [None]
  - High density lipoprotein decreased [None]
  - Lipids abnormal [None]
  - Low density lipoprotein increased [None]

NARRATIVE: CASE EVENT DATE: 20190304
